FAERS Safety Report 22223134 (Version 2)
Quarter: 2023Q2

REPORT INFORMATION
  Report Type: Spontaneous
  Country: JP (occurrence: JP)
  Receive Date: 20230418
  Receipt Date: 20230420
  Transmission Date: 20230721
  Serious: Yes (Death, Other)
  Sender: FDA-Public Use
  Company Number: JP-PFIZER INC-PV202300068838

PATIENT
  Age: 39 Year
  Sex: Male

DRUGS (1)
  1. TRIAZOLAM [Suspect]
     Active Substance: TRIAZOLAM
     Dosage: 10 MG, SINGLE (40 TABLETS)

REACTIONS (3)
  - Asphyxia [Fatal]
  - Toxicity to various agents [Fatal]
  - Overdose [Fatal]
